FAERS Safety Report 20012910 (Version 1)
Quarter: 2021Q4

REPORT INFORMATION
  Report Type: Spontaneous
  Country: FR (occurrence: FR)
  Receive Date: 20211029
  Receipt Date: 20211029
  Transmission Date: 20220303
  Serious: Yes (Hospitalization, Other)
  Sender: FDA-Public Use
  Company Number: FR-002147023-NVSC2017FR019907

PATIENT
  Age: 4 Year
  Sex: Female

DRUGS (16)
  1. VINCRISTINE SULFATE [Suspect]
     Active Substance: VINCRISTINE SULFATE
     Indication: Acute lymphocytic leukaemia
     Dosage: 1.1 MG, QD (CUMULATIVE DOSE: 14.368 MG)
     Route: 042
     Dates: start: 20171106, end: 20171213
  2. VINCRISTINE SULFATE [Suspect]
     Active Substance: VINCRISTINE SULFATE
     Dosage: 1 MG, QD  (CUMULATIVE DOSE: 14.368 MG)
     Route: 042
     Dates: start: 20170615
  3. CYTARABINE [Suspect]
     Active Substance: CYTARABINE
     Indication: Acute lymphocytic leukaemia
     Dosage: 50 MG, QD
     Route: 042
     Dates: start: 20171229, end: 20180118
  4. DOXORUBICIN HYDROCHLORIDE [Suspect]
     Active Substance: DOXORUBICIN HYDROCHLORIDE
     Indication: Acute lymphocytic leukaemia
     Dosage: 17.4 MG, QD
     Route: 042
     Dates: start: 20171106, end: 20171213
  5. METHOTREXATE SODIUM [Suspect]
     Active Substance: METHOTREXATE SODIUM
     Indication: Acute lymphocytic leukaemia
     Dosage: 17.5 MG
     Dates: start: 20170803
  6. METHOTREXATE SODIUM [Suspect]
     Active Substance: METHOTREXATE SODIUM
     Indication: Acute lymphocytic leukaemia
     Dosage: 12 MG, 1X/DAY
     Route: 037
     Dates: start: 20170608
  7. METHOTREXATE SODIUM [Suspect]
     Active Substance: METHOTREXATE SODIUM
     Dosage: 12 MG, 1X/DAY
     Route: 037
     Dates: start: 20171109, end: 20171109
  8. MERCAPTOPURINE [Suspect]
     Active Substance: MERCAPTOPURINE
     Indication: Acute lymphocytic leukaemia
     Dosage: 35 MG, 1X/DAY
     Route: 048
     Dates: start: 20170727
  9. PEGASPARGASE [Suspect]
     Active Substance: PEGASPARGASE
     Indication: Acute lymphocytic leukaemia
     Route: 065
  10. PEGASPARGASE [Suspect]
     Active Substance: PEGASPARGASE
     Dosage: 900 IU, QD
     Route: 042
     Dates: start: 20170619
  11. PEGASPARGASE [Suspect]
     Active Substance: PEGASPARGASE
     Dosage: 1750 IU, QD
     Route: 042
     Dates: start: 20171109, end: 20171109
  12. ADRIAMYCIN [Suspect]
     Active Substance: DOXORUBICIN HYDROCHLORIDE
     Indication: Acute lymphocytic leukaemia
     Dosage: 17.4 MG, QD
     Route: 042
     Dates: start: 20171106, end: 20171213
  13. CYCLOPHOSPHAMIDE [Suspect]
     Active Substance: CYCLOPHOSPHAMIDE
     Indication: Acute lymphocytic leukaemia
     Dosage: 650 MG, QD
     Route: 042
     Dates: start: 20171227, end: 20171227
  14. DEXAMETHASONE [Suspect]
     Active Substance: DEXAMETHASONE
     Indication: Acute lymphocytic leukaemia
     Dosage: 4 MG, QD
     Route: 048
     Dates: start: 20170615, end: 20170925
  15. DEXAMETHASONE [Suspect]
     Active Substance: DEXAMETHASONE
     Dosage: 7 MG, QD (CUMULATIVE DOSE: 503 MG)
     Route: 048
     Dates: start: 20171106, end: 20171120
  16. THIOGUANINE ANHYDROUS [Suspect]
     Active Substance: THIOGUANINE ANHYDROUS
     Indication: Acute lymphocytic leukaemia
     Dosage: 40 MG, QD
     Route: 048
     Dates: start: 20171227, end: 20180109

REACTIONS (5)
  - Necrosis [Recovered/Resolved]
  - Febrile bone marrow aplasia [Recovered/Resolved]
  - Perineal necrosis [Recovered/Resolved]
  - Perineal infection [Recovered/Resolved]
  - Medication error [Recovered/Resolved]

NARRATIVE: CASE EVENT DATE: 20171117
